FAERS Safety Report 5475707-8 (Version None)
Quarter: 2007Q4

REPORT INFORMATION
  Report Type: 
  Country: None (occurrence: None)
  Receive Date: 20071001
  Receipt Date: 20070918
  Transmission Date: 20080405
  Serious: Yes (Hospitalization)
  Sender: FDA-Public Use
  Company Number: SPV1-2007-04200

PATIENT
  Age: 11 Year
  Sex: Female
  Weight: 56.7 kg

DRUGS (4)
  1. DAYTRANA [Suspect]
     Indication: ATTENTION DEFICIT/HYPERACTIVITY DISORDER
     Dosage: 30 MG, 1X.DAY:QD, TRANSDERMAL
     Route: 062
     Dates: start: 20061201, end: 20070801
  2. DAYTRANA [Suspect]
     Indication: ATTENTION DEFICIT/HYPERACTIVITY DISORDER
     Dosage: 20 MG, 1X/DAY:QD; TRANSDERMAL
     Route: 062
     Dates: start: 20070801
  3. AVASTIN /00848101/ (SIMVASTATIN) SOLUTION FOR INJECTION [Concomitant]
  4. CONCERTA [Concomitant]

REACTIONS (3)
  - ABNORMAL BEHAVIOUR [None]
  - BLINDNESS UNILATERAL [None]
  - RETINAL HAEMORRHAGE [None]
